FAERS Safety Report 21614341 (Version 2)
Quarter: 2022Q4

REPORT INFORMATION
  Report Type: Spontaneous
  Country: JP (occurrence: JP)
  Receive Date: 20221118
  Receipt Date: 20221214
  Transmission Date: 20230113
  Serious: Yes (Death, Other)
  Sender: FDA-Public Use
  Company Number: JP-Merck Healthcare KGaA-9364658

PATIENT
  Age: 76 Year
  Sex: Male

DRUGS (3)
  1. ERBITUX [Suspect]
     Active Substance: CETUXIMAB
     Indication: Colon cancer metastatic
     Dosage: 250 MG/M2, WEEKLY (1/W)
     Route: 041
     Dates: start: 20220112, end: 20220727
  2. ENCORAFENIB [Suspect]
     Active Substance: ENCORAFENIB
     Indication: Colon cancer metastatic
     Dosage: 300 MG, DAILY
     Route: 048
     Dates: start: 20220112, end: 20220727
  3. BINIMETINIB [Suspect]
     Active Substance: BINIMETINIB
     Indication: Colon cancer metastatic
     Dosage: 45 MG, UNKNOWN
     Route: 048
     Dates: start: 20220511, end: 20220727

REACTIONS (2)
  - Malignant neoplasm progression [Fatal]
  - Metastases to bone [Recovering/Resolving]
